FAERS Safety Report 8770861 (Version 1)
Quarter: 2012Q4

REPORT INFORMATION
  Report Type: Report from Study
  Country: JP (occurrence: JP)
  Receive Date: 20120906
  Receipt Date: 20120906
  Transmission Date: 20130627
  Serious: Yes (Other)
  Sender: FDA-Public Use
  Company Number: JP-VERTEX PHARMACEUTICAL INC.-2012-020671

PATIENT
  Age: 66 Year
  Sex: Female

DRUGS (5)
  1. VX-950 [Suspect]
     Indication: HEPATITIS C
     Dosage: 1500 mg, qd
     Route: 048
     Dates: start: 20120517, end: 20120809
  2. RIBAVIRIN [Suspect]
     Indication: HEPATITIS C
     Dosage: 600 mg, qd
     Route: 048
     Dates: start: 20120517
  3. RIBAVIRIN [Suspect]
     Dosage: 400 UNK, UNK
     Route: 048
     Dates: start: 20120621
  4. PEGINTERFERON ALFA-2B [Suspect]
     Indication: HEPATITIS C
     Dosage: 1.5 UNK, UNK
     Route: 058
     Dates: start: 20120517
  5. MYSLEE [Concomitant]
     Dosage: UNK, prn
     Route: 048

REACTIONS (1)
  - Retinopathy [Not Recovered/Not Resolved]
